FAERS Safety Report 8746386 (Version 2)
Quarter: 2013Q4

REPORT INFORMATION
  Report Type: Report from Study
  Country: US (occurrence: US)
  Receive Date: 20120827
  Receipt Date: 20131101
  Transmission Date: 20140711
  Serious: No
  Sender: FDA-Public Use
  Company Number: US-009507513-1208USA002472

PATIENT
  Sex: Male

DRUGS (6)
  1. PEGINTRON [Suspect]
     Indication: HEPATITIS C
     Dosage: UNK
     Dates: start: 20090101, end: 20100101
  2. REBETOL [Suspect]
     Indication: HEPATITIS C
     Dosage: UNK
     Dates: start: 20100101, end: 20110101
  3. REBETOL [Suspect]
     Dosage: UNK
     Dates: start: 20120628, end: 20120802
  4. PEGASYS [Suspect]
     Indication: HEPATITIS C
     Dosage: UNK
     Dates: start: 20100101, end: 20110101
  5. PEGASYS [Suspect]
     Dosage: UNK
     Dates: start: 20120628, end: 20120802
  6. TELAPREVIR [Suspect]
     Indication: HEPATITIS C
     Dosage: UNK
     Dates: start: 20120628, end: 20120802

REACTIONS (3)
  - Viral load increased [Unknown]
  - Liver injury [Unknown]
  - Drug ineffective [Unknown]
